FAERS Safety Report 20219183 (Version 1)
Quarter: 2021Q4

REPORT INFORMATION
  Report Type: Spontaneous
  Country: MK (occurrence: MK)
  Receive Date: 20211222
  Receipt Date: 20211222
  Transmission Date: 20220303
  Serious: Yes (Hospitalization)
  Sender: FDA-Public Use
  Company Number: MK-PERRIGO-21MK032317

PATIENT
  Age: 64 Year
  Sex: Male

DRUGS (1)
  1. MINOXIDIL [Suspect]
     Active Substance: MINOXIDIL
     Indication: Alopecia
     Dosage: APPROXIMATELY 60 ML, SINGLE
     Route: 048

REACTIONS (8)
  - Overdose [Recovered/Resolved]
  - Intentional product misuse [Recovered/Resolved]
  - Hypotension [Recovered/Resolved]
  - Tachycardia [Recovered/Resolved]
  - Subendocardial ischaemia [Recovered/Resolved]
  - Acute kidney injury [Recovered/Resolved]
  - Withdrawal hypertension [Recovered/Resolved]
  - Leukocytosis [Recovered/Resolved]
